FAERS Safety Report 20558825 (Version 10)
Quarter: 2022Q4

REPORT INFORMATION
  Report Type: Report from Study
  Country: US (occurrence: US)
  Receive Date: 20220307
  Receipt Date: 20221222
  Transmission Date: 20230113
  Serious: Yes (Other)
  Sender: FDA-Public Use
  Company Number: US-NOVARTISTESTPH-NVSC2022US052108

PATIENT
  Age: 27 Year
  Sex: Female

DRUGS (1)
  1. KESIMPTA [Suspect]
     Active Substance: OFATUMUMAB
     Indication: Relapsing multiple sclerosis
     Dosage: 20 MG, QMO
     Route: 058
     Dates: start: 20220225

REACTIONS (23)
  - Multiple sclerosis relapse [Unknown]
  - Tremor [Unknown]
  - Fatigue [Unknown]
  - Gait disturbance [Unknown]
  - Fine motor skill dysfunction [Unknown]
  - Balance disorder [Unknown]
  - Dysphemia [Unknown]
  - Anxiety [Unknown]
  - Depression [Unknown]
  - Temperature intolerance [Unknown]
  - Feeling abnormal [Unknown]
  - Pain in extremity [Unknown]
  - Insomnia [Unknown]
  - Hypoaesthesia [Unknown]
  - Muscle spasms [Recovered/Resolved]
  - Clumsiness [Unknown]
  - Grip strength decreased [Unknown]
  - Frustration tolerance decreased [Unknown]
  - Hypokinesia [Unknown]
  - Pyrexia [Recovered/Resolved]
  - Dizziness [Recovered/Resolved]
  - Nausea [Recovered/Resolved]
  - Chills [Recovered/Resolved]

NARRATIVE: CASE EVENT DATE: 20220609
